FAERS Safety Report 21194717 (Version 8)
Quarter: 2022Q4

REPORT INFORMATION
  Report Type: Spontaneous
  Country: CA (occurrence: CA)
  Receive Date: 20220810
  Receipt Date: 20221027
  Transmission Date: 20230113
  Serious: Yes (Other)
  Sender: FDA-Public Use
  Company Number: CA-PFIZER INC-202200902755

PATIENT
  Age: 44 Year
  Sex: Female

DRUGS (10)
  1. ABRILADA [Suspect]
     Active Substance: ADALIMUMAB-AFZB
     Indication: Psoriasis
     Dosage: 80 MG, WEEK 0 DOSE, THEN 40 MG EVERY OTHER WEEK
     Route: 058
     Dates: start: 20220615, end: 20220615
  2. ABRILADA [Suspect]
     Active Substance: ADALIMUMAB-AFZB
     Indication: Hidradenitis
     Dosage: 80 MG, WEEK 0 DOSE PREFILLED PEN
     Route: 058
     Dates: start: 20220615, end: 20220615
  3. ABRILADA [Suspect]
     Active Substance: ADALIMUMAB-AFZB
     Dosage: 1 DF, WEEK 0 80MG, THEN 40 MG EVERY OTHER WEEK
     Route: 058
     Dates: start: 20220623
  4. ABRILADA [Suspect]
     Active Substance: ADALIMUMAB-AFZB
     Dosage: 1 DF (WEEK 0 160 MG, WEEK 2 - 80MG, THEN 40 MG EVERY WEEK STARTING WEEK 4 - PREFILLED PEN)
     Route: 058
     Dates: start: 20220623
  5. BENZALKONIUM [Concomitant]
     Active Substance: BENZALKONIUM
     Dosage: UNK
  6. BIMEKIZUMAB [Concomitant]
     Active Substance: BIMEKIZUMAB
     Dosage: UNK
  7. CYCLOSPORINE [Concomitant]
     Active Substance: CYCLOSPORINE
     Dosage: UNK
     Dates: start: 202208, end: 202208
  8. CYCLOSPORINE [Concomitant]
     Active Substance: CYCLOSPORINE
     Dosage: 100 MG (FROM 100MG TO 200MG)
  9. CYCLOSPORINE [Concomitant]
     Active Substance: CYCLOSPORINE
     Dosage: 200 MG (FROM 100MG TO 200MG)
  10. CYCLOSPORINE [Concomitant]
     Active Substance: CYCLOSPORINE
     Dosage: 1 DF, DOSAGE NOT AVAILABLE
     Route: 065

REACTIONS (23)
  - Sensitive skin [Unknown]
  - Dermabrasion [Unknown]
  - Sepsis [Unknown]
  - Drug ineffective [Not Recovered/Not Resolved]
  - Off label use [Unknown]
  - Off label use [Unknown]
  - Petechiae [Unknown]
  - Injection site rash [Unknown]
  - Abscess bacterial [Not Recovered/Not Resolved]
  - Injection site erythema [Not Recovered/Not Resolved]
  - Injection site pruritus [Not Recovered/Not Resolved]
  - Injection site pain [Not Recovered/Not Resolved]
  - Rash [Not Recovered/Not Resolved]
  - Rash pruritic [Not Recovered/Not Resolved]
  - Pallor [Unknown]
  - Erythema [Unknown]
  - Skin infection [Recovered/Resolved]
  - Heat stroke [Recovering/Resolving]
  - Flat affect [Unknown]
  - Impaired driving ability [Unknown]
  - Loss of personal independence in daily activities [Unknown]
  - Pain [Unknown]
  - Eczema [Recovering/Resolving]

NARRATIVE: CASE EVENT DATE: 20220101
